FAERS Safety Report 9158448 (Version 3)
Quarter: 2013Q3

REPORT INFORMATION
  Report Type: Spontaneous
  Country: US (occurrence: US)
  Receive Date: 20130312
  Receipt Date: 20130705
  Transmission Date: 20140515
  Serious: Yes (Hospitalization)
  Sender: FDA-Public Use
  Company Number: US-B.I. PHARMACEUTICALS,INC./RIDGEFIELD-2013-BI-06105BP

PATIENT
  Age: 67 Year
  Sex: Male
  Weight: 34 kg

DRUGS (16)
  1. PRADAXA [Suspect]
     Indication: ATHEROSCLEROSIS PROPHYLAXIS
     Dosage: 300 MG
     Route: 048
     Dates: start: 201212, end: 20130215
  2. CAUMADIN [Concomitant]
     Dates: start: 20130320
  3. CALCIUM CARBONATE [Concomitant]
     Dosage: 1.25 G
     Route: 048
  4. SINEMET [Concomitant]
     Dosage: STRENTH: 25/100 ONE TABLET
     Route: 048
  5. DILTIAZEM CD [Concomitant]
     Dosage: 180 MG
     Route: 048
  6. FUNISOLIDE NASAL SPRAY [Concomitant]
     Dosage: FORULATION: SPRAY; STRENTH: 2 SQIRTS TO EACH NOSTRIL DAILY
  7. FORADIL INHALATION [Concomitant]
     Dosage: DOSE: 2 TIMES PER DAY
     Route: 055
  8. GLIPIZIDE [Concomitant]
     Dosage: 2.5 MG
     Route: 048
  9. LISINOPRIL [Concomitant]
     Dosage: 5 MG
     Route: 048
  10. TEMAZEPAN [Concomitant]
     Route: 048
  11. METOPROLOL [Concomitant]
     Dosage: 100 MG
     Route: 048
  12. SPIRIVA [Concomitant]
     Dosage: DOSE: 1 INHALATION DAILY
     Route: 055
  13. INSULINE [Concomitant]
  14. TESTOSTERONE [Concomitant]
  15. ASPIRINE [Concomitant]
  16. PENICILLIN [Concomitant]

REACTIONS (2)
  - Transient ischaemic attack [Recovered/Resolved]
  - Speech disorder [Recovered/Resolved]
